FAERS Safety Report 5575658-4 (Version None)
Quarter: 2007Q4

REPORT INFORMATION
  Report Type: 
  Country: None (occurrence: None)
  Receive Date: 20071221
  Receipt Date: 20071211
  Transmission Date: 20080405
  Serious: Yes (Hospitalization)
  Sender: FDA-Public Use
  Company Number: S07-FRA-06407-01

PATIENT
  Age: 76 Year
  Sex: Female

DRUGS (11)
  1. CITALOPRAM HYDROBROMIDE [Suspect]
     Indication: DEPRESSION
  2. HUMALOG [Suspect]
     Indication: DIABETES MELLITUS
  3. IMOVANE (ZOPICLONE) [Suspect]
     Indication: INSOMNIA
  4. LANSOPRAZOLE [Suspect]
     Indication: GASTRODUODENAL ULCER
  5. PERINDOPRIL ERBUMINE [Suspect]
     Indication: HYPERTENSION
     Dates: end: 20070905
  6. PERINDOPRIL ERBUMINE [Suspect]
     Indication: HYPERTENSION
     Dates: start: 20070907
  7. ZAMUDOL (TRAMADOL) [Suspect]
     Indication: PAIN
  8. CLONAZEPAM [Suspect]
     Indication: ANXIETY
  9. POLARAMINE [Suspect]
  10. FORLAX (MACROGOL) [Suspect]
     Indication: CONSTIPATION
  11. LEXOMIL (BROMAZEPAM) [Suspect]
     Indication: ANXIETY

REACTIONS (2)
  - DIABETES MELLITUS INADEQUATE CONTROL [None]
  - PRURITUS [None]
